FAERS Safety Report 6435871-0 (Version None)
Quarter: 2009Q4

REPORT INFORMATION
  Report Type: 
  Country: None (occurrence: None)
  Receive Date: 20091111
  Receipt Date: 20091103
  Transmission Date: 20100525
  Serious: Yes (Other)
  Sender: FDA-Public Use
  Company Number: CA-JNJFOC-20091101580

PATIENT
  Sex: Male
  Weight: 97 kg

DRUGS (1)
  1. REMICADE [Suspect]
     Indication: COLITIS ULCERATIVE
     Dosage: 5 DOSES TOTAL
     Route: 042
     Dates: start: 20090408, end: 20090910

REACTIONS (2)
  - PYODERMA GANGRENOSUM [None]
  - SINUSITIS [None]
